FAERS Safety Report 19312859 (Version 1)
Quarter: 2021Q2

REPORT INFORMATION
  Report Type: Spontaneous
  Country: US (occurrence: US)
  Receive Date: 20210527
  Receipt Date: 20210527
  Transmission Date: 20210717
  Serious: No
  Sender: FDA-Public Use
  Company Number: None

PATIENT
  Age: 3 Year
  Sex: Male
  Weight: 14.4 kg

DRUGS (3)
  1. PROBIOTIC POWDER FORM FOR KIDS [Concomitant]
  2. CLARITIN LIQUID [Concomitant]
  3. CHILDRENS NASACORT ALLERGY 24HR [Suspect]
     Active Substance: TRIAMCINOLONE ACETONIDE
     Indication: PULMONARY CONGESTION
     Dosage: ?          OTHER STRENGTH:MCG;QUANTITY:1 SPRAY(S);?
     Route: 055

REACTIONS (1)
  - Product packaging issue [None]

NARRATIVE: CASE EVENT DATE: 20210507
